FAERS Safety Report 9230790 (Version 3)
Quarter: 2013Q2

REPORT INFORMATION
  Report Type: Spontaneous
  Country: GB (occurrence: None)
  Receive Date: 20130411
  Receipt Date: 20130508
  Transmission Date: 20140414
  Serious: Yes (Other)
  Sender: FDA-Public Use
  Company Number: AUR-APL-2013-02895

PATIENT
  Age: 54 Year
  Sex: Female

DRUGS (12)
  1. CITALOPRAM [Suspect]
     Indication: DEPRESSION
  2. SERTRALINE [Suspect]
     Indication: ANXIETY
     Dates: start: 20120315, end: 20120413
  3. SERTRALINE [Suspect]
     Dates: start: 20120315, end: 20120413
  4. EVOREL SEQUI (KLIOGEST /00686201/) [Suspect]
     Indication: HORMONE REPLACEMENT THERAPY
     Route: 062
     Dates: start: 201202, end: 201204
  5. EVOREL SEQUI (KLIOGEST /00686201/) [Suspect]
     Route: 062
     Dates: start: 201202, end: 201204
  6. FEMOSTON [Suspect]
     Indication: HORMONE REPLACEMENT THERAPY
     Dates: start: 2012, end: 20120820
  7. KLIOGEST [Suspect]
     Indication: PRODUCT USED FOR UNKNOWN INDICATION
     Dates: start: 201204, end: 20120515
  8. KLIOGEST [Suspect]
     Dates: start: 201204, end: 20120515
  9. ZUMESTON (ZUMESTON) [Suspect]
     Indication: PRODUCT USED FOR UNKNOWN INDICATION
  10. ZOPICLONE [Concomitant]
  11. MIRTAZAPINE [Concomitant]
  12. AMITRIPTYLINE (AMITRIPTYLINE) [Concomitant]

REACTIONS (11)
  - Hypoaesthesia oral [None]
  - Toothache [None]
  - Anxiety [None]
  - Vomiting [None]
  - Fear [None]
  - Hypersensitivity [None]
  - Pain [None]
  - Otorrhoea [None]
  - Headache [None]
  - Hearing impaired [None]
  - Nerve injury [None]
